FAERS Safety Report 6752325-2 (Version None)
Quarter: 2010Q2

REPORT INFORMATION
  Report Type: 
  Country: None (occurrence: None)
  Receive Date: 20100601
  Receipt Date: 20100601
  Transmission Date: 20101027
  Serious: No
  Sender: FDA-Public Use
  Company Number: None

PATIENT
  Age: 62 Year
  Sex: Male

DRUGS (1)
  1. TAMSULOSIN HCL [Suspect]
     Dosage: TAKE 1 CAPSULE DAILY
     Dates: start: 20090622

REACTIONS (7)
  - DYSURIA [None]
  - MICTURITION URGENCY [None]
  - POLLAKIURIA [None]
  - PRODUCT SUBSTITUTION ISSUE [None]
  - URINARY HESITATION [None]
  - URINARY INCONTINENCE [None]
  - URINE FLOW DECREASED [None]
